FAERS Safety Report 6805894-8 (Version None)
Quarter: 2010Q2

REPORT INFORMATION
  Report Type: 
  Country: None (occurrence: None)
  Receive Date: 20100629
  Receipt Date: 20071027
  Transmission Date: 20101027
  Serious: No
  Sender: FDA-Public Use
  Company Number: US-PFIZER INC-2007090876

PATIENT
  Age: 27 Year
  Sex: Male
  Weight: 102.1 kg

DRUGS (1)
  1. VIAGRA [Suspect]
     Indication: ERECTILE DYSFUNCTION
     Dates: start: 20070101

REACTIONS (1)
  - BLOOD PRESSURE INCREASED [None]
